FAERS Safety Report 12178018 (Version 2)
Quarter: 2016Q1

REPORT INFORMATION
  Report Type: Spontaneous
  Country: DE (occurrence: DE)
  Receive Date: 20160314
  Receipt Date: 20160318
  Transmission Date: 20160526
  Serious: Yes (Hospitalization, Other)
  Sender: FDA-Public Use
  Company Number: DE-PFIZER INC-2016149433

PATIENT
  Age: 56 Year
  Sex: Male
  Weight: 90 kg

DRUGS (9)
  1. ASPIRIN. [Concomitant]
     Active Substance: ASPIRIN
     Indication: THROMBOSIS PROPHYLAXIS
     Dosage: 100 MG, 1X/DAY
     Route: 048
     Dates: start: 201503, end: 20160215
  2. TELMISARTAN HCT [Concomitant]
     Indication: HYPERTENSION
     Dosage: 80/12.5 MG
     Route: 048
     Dates: start: 201503, end: 20160215
  3. ATMADISC DAE [Concomitant]
     Dosage: UNK
     Route: 055
     Dates: start: 201503
  4. PANTOZOL [Suspect]
     Active Substance: PANTOPRAZOLE SODIUM
     Dosage: 40 MG, DAILY
     Route: 048
     Dates: start: 20160208, end: 20160215
  5. MONO-EMBOLEX [Concomitant]
     Active Substance: CERTOPARIN SODIUM
     Dosage: 3000 IU, UNK
     Route: 058
     Dates: start: 20160208, end: 20160215
  6. SIMVASTATIN. [Concomitant]
     Active Substance: SIMVASTATIN
     Dosage: 40 MG, 1X/DAY
     Route: 048
     Dates: start: 201503, end: 20160215
  7. IBUPROFEN. [Suspect]
     Active Substance: IBUPROFEN
     Indication: POSTOPERATIVE ANALGESIA
     Dosage: 600 MG, 2X/DAY
     Route: 048
     Dates: start: 20160208, end: 20160208
  8. NOVALGIN [Suspect]
     Active Substance: METAMIZOLE SODIUM
     Indication: POSTOPERATIVE ANALGESIA
     Dosage: 1 G, 4X/DAY
     Route: 048
     Dates: start: 20160208, end: 20160215
  9. RIVOTRIL [Concomitant]
     Active Substance: CLONAZEPAM
     Dosage: UNK
     Route: 048
     Dates: start: 201503

REACTIONS (1)
  - Stevens-Johnson syndrome [Not Recovered/Not Resolved]

NARRATIVE: CASE EVENT DATE: 20160212
